FAERS Safety Report 8217254-6 (Version None)
Quarter: 2012Q1

REPORT INFORMATION
  Report Type: 
  Country: None (occurrence: None)
  Receive Date: 20120319
  Receipt Date: 20120314
  Transmission Date: 20120608
  Serious: No
  Sender: FDA-Public Use
  Company Number: US-PFIZER INC-2012067724

PATIENT
  Sex: Female

DRUGS (1)
  1. ARTHROTEC [Suspect]
     Dosage: 50/200 MG/MCG
     Route: 048

REACTIONS (4)
  - GASTROINTESTINAL DISORDER [None]
  - DYSPEPSIA [None]
  - PAIN [None]
  - GASTROINTESTINAL PAIN [None]
